FAERS Safety Report 10738604 (Version 3)
Quarter: 2015Q1

REPORT INFORMATION
  Report Type: Spontaneous
  Country: NL (occurrence: NL)
  Receive Date: 20150126
  Receipt Date: 20150319
  Transmission Date: 20150721
  Serious: No
  Sender: FDA-Public Use
  Company Number: NL-TAKEDA-2015TUS000838

PATIENT
  Sex: Male

DRUGS (1)
  1. ENTYVIO [Suspect]
     Active Substance: VEDOLIZUMAB
     Indication: CROHN^S DISEASE
     Dosage: 300 MG, UNK
     Route: 042

REACTIONS (2)
  - Dizziness [Recovered/Resolved]
  - Cutaneous lupus erythematosus [Recovered/Resolved]
